FAERS Safety Report 5969288-X (Version None)
Quarter: 2008Q4

REPORT INFORMATION
  Report Type: 
  Country: None (occurrence: None)
  Receive Date: 20081126
  Receipt Date: 20081120
  Transmission Date: 20090506
  Serious: Yes (Other)
  Sender: FDA-Public Use
  Company Number: DE-B.I. PHARMACEUTICALS,INC./RIDGEFIELD-2008-DE-07005DE

PATIENT
  Sex: Female
  Weight: 60 kg

DRUGS (5)
  1. MICARDIS [Suspect]
     Indication: HYPERTENSION
     Dosage: 1ANZ
     Route: 048
     Dates: start: 20080701
  2. MICARDIS [Suspect]
     Indication: TACHYCARDIA
  3. METOPROLOL TARTRATE [Suspect]
     Indication: HYPERTENSION
     Dosage: 1/4 DAILY
     Route: 048
  4. METOPROLOL TARTRATE [Suspect]
     Indication: TACHYCARDIA
  5. TRAMAL 100 [Concomitant]
     Dosage: 1-2 DAILY

REACTIONS (3)
  - ASTHENIA [None]
  - BLOOD PRESSURE DECREASED [None]
  - SYNCOPE [None]
